FAERS Safety Report 19079305 (Version 3)
Quarter: 2021Q3

REPORT INFORMATION
  Report Type: Spontaneous
  Country: US (occurrence: US)
  Receive Date: 20210331
  Receipt Date: 20210716
  Transmission Date: 20211014
  Serious: Yes (Other)
  Sender: FDA-Public Use
  Company Number: US-BAYER-2021-114795

PATIENT
  Sex: Male

DRUGS (3)
  1. KOVALTRY [Suspect]
     Active Substance: ANTIHEMOPHILIC FACTOR, HUMAN RECOMBINANT
     Indication: FACTOR VIII DEFICIENCY
     Dosage: INFUSE (+/? 10%) 3000 UNITS EVERY 36 HOURS
     Route: 042
     Dates: start: 201905
  2. KOVALTRY [Suspect]
     Active Substance: ANTIHEMOPHILIC FACTOR, HUMAN RECOMBINANT
     Indication: FACTOR VIII DEFICIENCY
     Dosage: INFUSE (+/? 10%) 3000 UNITS EVERY 36 HOURS
     Route: 042
     Dates: start: 201905
  3. KOVALTRY [Suspect]
     Active Substance: ANTIHEMOPHILIC FACTOR, HUMAN RECOMBINANT
     Indication: FACTOR VIII DEFICIENCY
     Dosage: 3 DF; TO TREAT ACTIVE LEFT GROIN AND BACK BLEEDS
     Route: 042

REACTIONS (4)
  - Haemorrhage [None]
  - Haemorrhage [Not Recovered/Not Resolved]
  - Haemarthrosis [None]
  - Haemorrhage [Unknown]
